FAERS Safety Report 12855902 (Version 1)
Quarter: 2016Q4

REPORT INFORMATION
  Report Type: Spontaneous
  Country: US (occurrence: US)
  Receive Date: 20161017
  Receipt Date: 20161017
  Transmission Date: 20170207
  Serious: Yes (Hospitalization)
  Sender: FDA-Public Use
  Company Number: None

PATIENT
  Age: 22 Year
  Sex: Female

DRUGS (10)
  1. MEPHYTON [Concomitant]
     Active Substance: PHYTONADIONE
  2. PULMOZYME [Concomitant]
     Active Substance: DORNASE ALFA
  3. XOPENEX [Concomitant]
     Active Substance: LEVALBUTEROL HYDROCHLORIDE
  4. AZITHROMYCIN ANHYDROUS. [Concomitant]
     Active Substance: AZITHROMYCIN ANHYDROUS
  5. PREDNISONE. [Concomitant]
     Active Substance: PREDNISONE
  6. HUMALOG [Concomitant]
     Active Substance: INSULIN LISPRO
  7. TOBI POD [Concomitant]
  8. ORKAMBI [Suspect]
     Active Substance: IVACAFTOR\LUMACAFTOR
     Indication: CYSTIC FIBROSIS
     Dosage: 400-250MG BID PO
     Route: 048
     Dates: start: 20150918
  9. AQUADEKS [Concomitant]
     Active Substance: MINERALS\VITAMINS
  10. VORICONAZOLE. [Concomitant]
     Active Substance: VORICONAZOLE

REACTIONS (1)
  - Hospitalisation [None]
